FAERS Safety Report 7919679-2 (Version None)
Quarter: 2011Q4

REPORT INFORMATION
  Report Type: 
  Country: None (occurrence: None)
  Receive Date: 20111117
  Receipt Date: 20111103
  Transmission Date: 20120403
  Serious: Yes (Other)
  Sender: FDA-Public Use
  Company Number: US-ENDO PHARMACEUTICALS INC.-OPER20110293

PATIENT
  Sex: Female

DRUGS (11)
  1. ASPIRIN [Concomitant]
     Indication: CARDIOVASCULAR EVENT PROPHYLAXIS
     Route: 048
  2. FLEETS ENEMA [Concomitant]
     Indication: CONSTIPATION
     Dosage: UNK
     Route: 054
  3. BACLOFEN [Concomitant]
     Indication: MUSCLE SPASMS
     Dosage: UNK
  4. PREVACID [Concomitant]
     Indication: GASTROOESOPHAGEAL REFLUX DISEASE
     Dosage: UNK
  5. OPANA ER [Suspect]
     Indication: PAIN
     Route: 048
     Dates: start: 20111031, end: 20111101
  6. OXYMORPHONE HYDROCHLORIDE [Suspect]
     Indication: BREAKTHROUGH PAIN
     Dosage: 10 MG
     Route: 048
     Dates: start: 20111101, end: 20111101
  7. AVONEX [Concomitant]
     Indication: MULTIPLE SCLEROSIS
     Dosage: UNK
  8. BENTYL [Concomitant]
     Indication: PRODUCT USED FOR UNKNOWN INDICATION
     Dosage: UNK
  9. BUTALBITAL ACETAMINOPHEN AND CAFFEINE [Concomitant]
     Indication: PRODUCT USED FOR UNKNOWN INDICATION
     Dosage: UNK
  10. DIAZEPAM [Concomitant]
     Indication: PRODUCT USED FOR UNKNOWN INDICATION
     Dosage: UNK
  11. HYDROCODONE BITARTRATE [Concomitant]
     Indication: PAIN
     Dosage: 10 MG
     Route: 048
     Dates: end: 20111031

REACTIONS (3)
  - INAPPROPRIATE SCHEDULE OF DRUG ADMINISTRATION [None]
  - PRURITUS [None]
  - ABDOMINAL PAIN UPPER [None]
